FAERS Safety Report 9095592 (Version 2)
Quarter: 2013Q1

REPORT INFORMATION
  Report Type: Spontaneous
  Country: IN (occurrence: IN)
  Receive Date: 20130220
  Receipt Date: 20130308
  Transmission Date: 20140127
  Serious: Yes (Hospitalization, Other)
  Sender: FDA-Public Use
  Company Number: PHHY2013IN015005

PATIENT
  Age: 32 Year
  Sex: Male

DRUGS (4)
  1. SIMULECT [Suspect]
     Dosage: UNK UKN, UNK
  2. TACROLIMUS [Concomitant]
     Indication: IMMUNOSUPPRESSION
     Dosage: UNK UKN, UNK
  3. CELLCEPT [Concomitant]
     Indication: IMMUNOSUPPRESSION
     Dosage: UNK UKN, UNK
  4. PREDNISOLONE [Concomitant]
     Indication: IMMUNOSUPPRESSION
     Dosage: UNK UKN, UNK

REACTIONS (7)
  - Renal tubular atrophy [Unknown]
  - Kidney transplant rejection [Unknown]
  - Anuria [Unknown]
  - Complications of transplanted kidney [Unknown]
  - Hyperglycaemia [Unknown]
  - Blood creatinine increased [Unknown]
  - Haemoglobin decreased [Unknown]
